FAERS Safety Report 18392004 (Version 1)
Quarter: 2020Q4

REPORT INFORMATION
  Report Type: Spontaneous
  Country: US (occurrence: US)
  Receive Date: 20201016
  Receipt Date: 20201016
  Transmission Date: 20210114
  Serious: No
  Sender: FDA-Public Use
  Company Number: US-MYLANLABS-2020M1085681

PATIENT
  Sex: Male

DRUGS (3)
  1. GABAPENTIN. [Suspect]
     Active Substance: GABAPENTIN
     Indication: PRODUCT USED FOR UNKNOWN INDICATION
     Dosage: UNK
  2. LATUDA [Suspect]
     Active Substance: LURASIDONE HYDROCHLORIDE
     Indication: ANXIETY
     Dosage: 20 MILLIGRAM, QD
     Route: 048
     Dates: end: 20200831
  3. LATUDA [Suspect]
     Active Substance: LURASIDONE HYDROCHLORIDE
     Dosage: 10 MILLIGRAM, QD
     Route: 048

REACTIONS (10)
  - Sleep apnoea syndrome [Unknown]
  - Orgasm abnormal [Unknown]
  - Somnolence [Unknown]
  - Off label use [Unknown]
  - Product prescribing error [Unknown]
  - Loss of libido [Unknown]
  - Weight increased [Unknown]
  - Product dose omission issue [Unknown]
  - Disturbance in attention [Unknown]
  - Insomnia [Unknown]
